FAERS Safety Report 19199639 (Version 1)
Quarter: 2021Q2

REPORT INFORMATION
  Report Type: Spontaneous
  Country: US (occurrence: US)
  Receive Date: 20210429
  Receipt Date: 20210429
  Transmission Date: 20210717
  Serious: No
  Sender: FDA-Public Use
  Company Number: None

PATIENT
  Age: 4 Day

DRUGS (2)
  1. DOPAMINE [Suspect]
     Active Substance: DOPAMINE HYDROCHLORIDE
  2. DOPAMINE [Suspect]
     Active Substance: DOPAMINE HYDROCHLORIDE

REACTIONS (1)
  - Product label confusion [None]
